FAERS Safety Report 15916321 (Version 7)
Quarter: 2020Q2

REPORT INFORMATION
  Report Type: Report from Study
  Country: None (occurrence: BE)
  Receive Date: 20190204
  Receipt Date: 20200630
  Transmission Date: 20200713
  Serious: Yes (Hospitalization)
  Sender: FDA-Public Use
  Company Number: BE-ABBVIE-18S-013-2607450-00

PATIENT
  Age: 67 Year
  Sex: Male

DRUGS (11)
  1. DUODOPA [Suspect]
     Active Substance: CARBIDOPA\LEVODOPA
     Dosage: MD2.5ML CD2.5ML/HR DURING 16HRS ED0.6ML ND1.6ML/HR DURING 8 HRS
     Route: 050
     Dates: start: 20181226, end: 20181226
  2. DUODOPA [Suspect]
     Active Substance: CARBIDOPA\LEVODOPA
     Dosage: MD=3.4ML;CD=2.6ML/HR(AM) AND 3.4ML/HR(PM) DURING 16HRS;ED=2.4ML;ND=2.3ML/HR DURING 8HRS
     Route: 050
     Dates: start: 20190416, end: 20200626
  3. DUODOPA [Suspect]
     Active Substance: CARBIDOPA\LEVODOPA
     Dosage: MD=3.4ML, CD=3.8ML/HR DURING 16HRS, ED=2.4ML
     Route: 050
     Dates: start: 20200626
  4. PROLOPA 250 [Concomitant]
     Indication: PARKINSON^S DISEASE
     Dosage: FORM STRENGTH: 200MG/50MG
     Route: 048
  5. DUODOPA [Suspect]
     Active Substance: CARBIDOPA\LEVODOPA
     Dosage: DOSES CONTINUOUSLY MONITORED AND ADAPTED
     Route: 050
     Dates: start: 20140310, end: 20180924
  6. DUODOPA [Suspect]
     Active Substance: CARBIDOPA\LEVODOPA
     Dosage: MD2.5ML CD2.5ML/HR DURING16HRS ED0.6ML ND1.6ML/HR DURING 8 HRS
     Route: 050
     Dates: start: 20180924, end: 20181226
  7. PROLOPA 250 [Concomitant]
     Dosage: 200MG/50MG DAILY DOSE : 1 UNIT 3 TIME/DAY + 0.5 UNIT 2TIME/DAY RESCUE MEDICATION
  8. DUODOPA [Suspect]
     Active Substance: CARBIDOPA\LEVODOPA
     Dosage: MD= 2.5ML CD= 2.5ML/HR DURING 16HRS ED= 0.6ML ND= 1.6ML/HR DURING 8HRS
     Route: 050
     Dates: start: 20181226, end: 20190416
  9. PROLOPA 125 [Concomitant]
     Indication: PARKINSON^S DISEASE
     Dosage: FORM STRENGTH: 100MG/25MG;
     Route: 048
  10. DUODOPA [Suspect]
     Active Substance: CARBIDOPA\LEVODOPA
     Indication: PARKINSON^S DISEASE
     Dosage: MD=0ML CD=2ML/HR DURING 16HRS  ED=0.8ML
     Route: 050
     Dates: start: 20080310, end: 20140310
  11. LEPONEX [Concomitant]
     Active Substance: CLOZAPINE
     Indication: PRODUCT USED FOR UNKNOWN INDICATION

REACTIONS (9)
  - Hypokinesia [Unknown]
  - Hallucination, tactile [Recovering/Resolving]
  - Off label use [Recovered/Resolved]
  - On and off phenomenon [Recovering/Resolving]
  - Gait inability [Unknown]
  - Therapeutic product effect incomplete [Unknown]
  - Gastrointestinal infection [Not Recovered/Not Resolved]
  - Device expulsion [Recovered/Resolved]
  - Tremor [Recovering/Resolving]

NARRATIVE: CASE EVENT DATE: 201812
